FAERS Safety Report 5925487-4 (Version None)
Quarter: 2008Q4

REPORT INFORMATION
  Report Type: 
  Country: None (occurrence: None)
  Receive Date: 20081021
  Receipt Date: 20081010
  Transmission Date: 20090506
  Serious: Yes (Other)
  Sender: FDA-Public Use
  Company Number: PHHY2008JP16709

PATIENT
  Sex: Female

DRUGS (2)
  1. ZOMETA [Suspect]
     Indication: MULTIPLE MYELOMA
     Dosage: 4 MG(EVERY 2-4 WEEKS)
     Route: 042
     Dates: start: 20060928, end: 20080628
  2. PREDONINE [Concomitant]
     Indication: MULTIPLE MYELOMA
     Dosage: 10 MG, UNK
     Route: 048
     Dates: start: 20060202

REACTIONS (5)
  - BONE DISORDER [None]
  - ORAL PAIN [None]
  - OSTEOMYELITIS [None]
  - OSTEONECROSIS [None]
  - SWELLING [None]
